FAERS Safety Report 16014607 (Version 2)
Quarter: 2019Q2

REPORT INFORMATION
  Report Type: Spontaneous
  Country: ES (occurrence: ES)
  Receive Date: 20190227
  Receipt Date: 20190520
  Transmission Date: 20190711
  Serious: Yes (Disabling)
  Sender: FDA-Public Use
  Company Number: ES-TEVA-2019-ES-1015856

PATIENT
  Age: 60 Year
  Sex: Male
  Weight: 64 kg

DRUGS (4)
  1. ADIRO 300MG COMPRIMIDOS GASTRORRESISTENTES EFG , 30 COMPRIMIDOS [Concomitant]
     Active Substance: ASPIRIN
     Dosage: 1 EVERY 24 HOURS
     Route: 048
     Dates: start: 20030527, end: 201804
  2. IMBRUVICA [Suspect]
     Active Substance: IBRUTINIB
     Indication: CHRONIC LYMPHOCYTIC LEUKAEMIA
     Dosage: 3 CAPSULES (420MG) EVERY 24 HOURS. (0-0-3-0). 3 COMPR. OF 140 MG TOGETHER (SNACK)
     Route: 048
     Dates: start: 20180413, end: 20190128
  3. ENTECAVIR 0,5 [Suspect]
     Active Substance: ENTECAVIR
     Indication: HEPATITIS B
     Dosage: ENTECAVIR-0.5: 0-1-0
     Route: 048
     Dates: start: 201101
  4. CARDYL 10 MG COMPRIMIDOS RECUBIERTOS CON PELICULA , 28 COMPRIMIDOS [Suspect]
     Active Substance: ATORVASTATIN CALCIUM
     Indication: DYSLIPIDAEMIA
     Dosage: 0-0-1
     Route: 048
     Dates: start: 20031112, end: 20181106

REACTIONS (1)
  - Rhabdomyolysis [Not Recovered/Not Resolved]

NARRATIVE: CASE EVENT DATE: 201810
